FAERS Safety Report 4514042-9 (Version None)
Quarter: 2004Q4

REPORT INFORMATION
  Report Type: 
  Country: None (occurrence: None)
  Receive Date: 20041130
  Receipt Date: 20041005
  Transmission Date: 20050328
  Serious: Yes (Death, Hospitalization)
  Sender: FDA-Public Use
  Company Number: JPKYO-S-20040034

PATIENT
  Age: 71 Year
  Sex: Male

DRUGS (4)
  1. NAVELBINE [Suspect]
     Indication: LUNG ADENOCARCINOMA
     Route: 042
     Dates: start: 20040911, end: 20040917
  2. GEMZAR [Suspect]
     Indication: LUNG ADENOCARCINOMA
     Route: 042
     Dates: start: 20040911, end: 20040917
  3. DUROTEP [Concomitant]
  4. KYTRIL [Concomitant]

REACTIONS (12)
  - BLOOD GLUCOSE INCREASED [None]
  - DEPRESSED LEVEL OF CONSCIOUSNESS [None]
  - DUODENAL ULCER [None]
  - DYSPNOEA [None]
  - GASTRIC ULCER [None]
  - GASTROINTESTINAL HAEMORRHAGE [None]
  - LEUKOPENIA [None]
  - PNEUMONIA [None]
  - PYREXIA [None]
  - SHOCK HAEMORRHAGIC [None]
  - THERAPY NON-RESPONDER [None]
  - THROMBOCYTOPENIA [None]
